FAERS Safety Report 12386624 (Version 1)
Quarter: 2016Q2

REPORT INFORMATION
  Report Type: Spontaneous
  Country: IT (occurrence: IT)
  Receive Date: 20160519
  Receipt Date: 20160519
  Transmission Date: 20160815
  Serious: Yes (Other)
  Sender: FDA-Public Use
  Company Number: IT-TEVA-660649ACC

PATIENT

DRUGS (2)
  1. FLURAZEPAM [Suspect]
     Active Substance: FLURAZEPAM\FLURAZEPAM HYDROCHLORIDE
  2. DIAZEPAM. [Suspect]
     Active Substance: DIAZEPAM

REACTIONS (6)
  - Sedation [Unknown]
  - Dementia [Unknown]
  - Delirium [Unknown]
  - Fall [Unknown]
  - Drug level increased [Unknown]
  - Ataxia [Unknown]
